FAERS Safety Report 25762472 (Version 2)
Quarter: 2025Q3

REPORT INFORMATION
  Report Type: Spontaneous
  Country: US (occurrence: US)
  Receive Date: 20250904
  Receipt Date: 20250922
  Transmission Date: 20251020
  Serious: Yes (Other)
  Sender: UCB
  Company Number: US-UCBSA-2025054629

PATIENT
  Sex: Male
  Weight: 99.88 kg

DRUGS (1)
  1. CIMZIA [Suspect]
     Active Substance: CERTOLIZUMAB PEGOL
     Indication: Rheumatoid arthritis
     Dosage: 200 MILLIGRAM, EV 2 WEEKS(QOW) (MOST RECENT DOSE: 09-SEP-2025)
     Route: 058
     Dates: start: 2024

REACTIONS (3)
  - Rheumatoid arthritis [Not Recovered/Not Resolved]
  - Aortic dissection [Unknown]
  - Back pain [Unknown]

NARRATIVE: CASE EVENT DATE: 20240101
